FAERS Safety Report 7477738-5 (Version None)
Quarter: 2011Q2

REPORT INFORMATION
  Report Type: 
  Country: None (occurrence: None)
  Receive Date: 20110513
  Receipt Date: 20110429
  Transmission Date: 20111010
  Serious: Yes (Hospitalization)
  Sender: FDA-Public Use
  Company Number: CA-ELI_LILLY_AND_COMPANY-CA201105000178

PATIENT
  Age: 75 Year
  Sex: Female

DRUGS (15)
  1. VITAMIN D [Concomitant]
     Dosage: UNK, UNKNOWN
     Route: 065
  2. ALLOPURINOL [Concomitant]
     Dosage: UNK, UNKNOWN
     Route: 065
  3. DOCUSATE SODIUM [Concomitant]
     Dosage: UNK, UNKNOWN
     Route: 065
  4. FORTEO [Suspect]
     Indication: OSTEOPOROSIS
     Dosage: 20 UG, QD
     Route: 058
     Dates: start: 20100713
  5. ELAVIL [Concomitant]
     Dosage: UNK, UNKNOWN
     Route: 065
  6. NORVASC [Concomitant]
     Dosage: UNK, UNKNOWN
     Route: 065
  7. SYNTHROID [Concomitant]
     Dosage: UNK, UNKNOWN
     Route: 065
  8. PANTOPRAZOLE [Concomitant]
     Dosage: UNK, UNKNOWN
     Route: 065
  9. AMLODIPINE BESYLATE [Concomitant]
     Dosage: UNK, UNKNOWN
     Route: 065
  10. METOPROLOL SUCCINATE [Concomitant]
     Dosage: UNK, UNKNOWN
     Route: 065
  11. OXAZEPAM [Concomitant]
     Dosage: UNK, UNKNOWN
     Route: 065
  12. CALCIUM [Concomitant]
     Dosage: UNK, UNKNOWN
     Route: 065
  13. TRAZODONE HCL [Concomitant]
     Dosage: UNK, UNKNOWN
     Route: 065
  14. VENLAFAXINE [Concomitant]
     Dosage: UNK, UNKNOWN
     Route: 065
  15. DOMPERIDONE [Concomitant]
     Dosage: UNK, UNKNOWN
     Route: 065

REACTIONS (4)
  - PNEUMONIA [None]
  - DIARRHOEA [None]
  - CARDIAC FAILURE CONGESTIVE [None]
  - DRUG DOSE OMISSION [None]
